FAERS Safety Report 25009090 (Version 1)
Quarter: 2025Q1

REPORT INFORMATION
  Report Type: Spontaneous
  Country: US (occurrence: US)
  Receive Date: 20250225
  Receipt Date: 20250225
  Transmission Date: 20250409
  Serious: Yes (Life-Threatening, Other)
  Sender: TEVA
  Company Number: US-TEVA-VS-3300302

PATIENT
  Age: 68 Year
  Sex: Male

DRUGS (3)
  1. AJOVY [Suspect]
     Active Substance: FREMANEZUMAB-VFRM
     Indication: Migraine
     Route: 065
     Dates: start: 20240923
  2. AJOVY [Suspect]
     Active Substance: FREMANEZUMAB-VFRM
     Route: 065
     Dates: start: 20241122
  3. AJOVY [Suspect]
     Active Substance: FREMANEZUMAB-VFRM
     Route: 065
     Dates: start: 20241223

REACTIONS (20)
  - Lymphadenopathy [Not Recovered/Not Resolved]
  - Malaise [Not Recovered/Not Resolved]
  - Myalgia [Not Recovered/Not Resolved]
  - Insomnia [Not Recovered/Not Resolved]
  - Ataxia [Not Recovered/Not Resolved]
  - Constipation [Not Recovered/Not Resolved]
  - Inappropriate schedule of product administration [Unknown]
  - Bruxism [Not Recovered/Not Resolved]
  - Bedridden [Not Recovered/Not Resolved]
  - Gulf war syndrome [Not Recovered/Not Resolved]
  - Hallucination [Not Recovered/Not Resolved]
  - Dizziness [Not Recovered/Not Resolved]
  - Depression [Not Recovered/Not Resolved]
  - Hypersomnia [Not Recovered/Not Resolved]
  - Cognitive disorder [Not Recovered/Not Resolved]
  - Fatigue [Not Recovered/Not Resolved]
  - Arthralgia [Not Recovered/Not Resolved]
  - Rash [Not Recovered/Not Resolved]
  - Nightmare [Not Recovered/Not Resolved]
  - Dyspnoea [Not Recovered/Not Resolved]

NARRATIVE: CASE EVENT DATE: 20241122
